FAERS Safety Report 16114776 (Version 4)
Quarter: 2019Q2

REPORT INFORMATION
  Report Type: Spontaneous
  Country: US (occurrence: US)
  Receive Date: 20190325
  Receipt Date: 20190610
  Transmission Date: 20190711
  Serious: Yes (Hospitalization, Other)
  Sender: FDA-Public Use
  Company Number: US-JNJFOC-20190333707

PATIENT
  Age: 71 Year
  Sex: Male
  Weight: 100.25 kg

DRUGS (15)
  1. NORCO [Concomitant]
     Active Substance: ACETAMINOPHEN\HYDROCODONE BITARTRATE
     Route: 048
  2. MIRALAX [Concomitant]
     Active Substance: POLYETHYLENE GLYCOL 3350
     Route: 048
  3. SODIUM BICARBONATE. [Concomitant]
     Active Substance: SODIUM BICARBONATE
     Route: 048
  4. BACTRIM [Concomitant]
     Active Substance: SULFAMETHOXAZOLE\TRIMETHOPRIM
     Route: 048
     Dates: end: 20181204
  5. TAMULOSIN [Concomitant]
     Active Substance: TAMSULOSIN
     Route: 048
  6. CARVEDILOL. [Concomitant]
     Active Substance: CARVEDILOL
     Route: 048
  7. TUMS [Concomitant]
     Active Substance: CALCIUM CARBONATE
     Route: 048
  8. PREDNISONE. [Concomitant]
     Active Substance: PREDNISONE
     Route: 048
  9. FUROSEMIDE. [Concomitant]
     Active Substance: FUROSEMIDE
     Route: 048
  10. ZYTIGA [Suspect]
     Active Substance: ABIRATERONE ACETATE
     Indication: PROSTATE CANCER METASTATIC
     Dosage: 250 MG X 4 TABLETS ONCE A DAY
     Route: 048
     Dates: start: 20180829
  11. CALCIUM [Concomitant]
     Active Substance: CALCIUM
     Route: 048
  12. CALCITRIOL. [Concomitant]
     Active Substance: CALCITRIOL
     Route: 048
  13. MAGNESIUM OXIDE. [Concomitant]
     Active Substance: MAGNESIUM OXIDE
     Route: 048
     Dates: start: 20190204
  14. FISH OIL [Concomitant]
     Active Substance: FISH OIL
     Dosage: 1-3 DOSES
     Route: 048
  15. CEFPODOXIME [Concomitant]
     Active Substance: CEFPODOXIME
     Route: 048

REACTIONS (7)
  - Urinary tract obstruction [Unknown]
  - Device related infection [Unknown]
  - Urinary retention [Unknown]
  - Acidosis [Unknown]
  - Hospitalisation [Recovering/Resolving]
  - Acute kidney injury [Unknown]
  - Pyelonephritis acute [Recovering/Resolving]

NARRATIVE: CASE EVENT DATE: 2018
